FAERS Safety Report 5086982-6 (Version None)
Quarter: 2006Q3

REPORT INFORMATION
  Report Type: 
  Country: None (occurrence: None)
  Receive Date: 20060818
  Receipt Date: 20060731
  Transmission Date: 20061208
  Serious: Yes (Hospitalization)
  Sender: FDA-Public Use
  Company Number: US200608000476

PATIENT
  Age: 57 Year
  Sex: Male
  Weight: 99.8 kg

DRUGS (3)
  1. ZYPREXA [Suspect]
     Dosage: 15 MG
     Dates: start: 19960101, end: 20020301
  2. LITHIUM [Concomitant]
  3. FLUOXETINE [Concomitant]

REACTIONS (6)
  - BLOOD CHOLESTEROL ABNORMAL [None]
  - DIABETES MELLITUS [None]
  - HYPERTENSION [None]
  - PNEUMONIA [None]
  - RESPIRATORY FAILURE [None]
  - VASCULAR BYPASS GRAFT [None]
